FAERS Safety Report 10229581 (Version 3)
Quarter: 2015Q1

REPORT INFORMATION
  Report Type: Report from Study
  Country: IT (occurrence: None)
  Receive Date: 20140609
  Receipt Date: 20150313
  Transmission Date: 20150720
  Serious: Yes (Hospitalization)
  Sender: FDA-Public Use
  Company Number: 2373453

PATIENT
  Age: 67 Year
  Sex: Male
  Weight: 57.3 kg

DRUGS (2)
  1. CYTARABINE. [Suspect]
     Active Substance: CYTARABINE
     Indication: ACUTE LYMPHOCYTIC LEUKAEMIA
     Route: 041
     Dates: start: 20131107, end: 20131113
  2. MITOXANTRONE HYDROCHLORIDE. [Suspect]
     Active Substance: MITOXANTRONE HYDROCHLORIDE
     Indication: ACUTE LYMPHOCYTIC LEUKAEMIA
     Route: 042
     Dates: start: 20131107, end: 20131113

REACTIONS (4)
  - Ileal perforation [None]
  - Acute lymphocytic leukaemia [None]
  - Malignant neoplasm progression [None]
  - Abscess [None]

NARRATIVE: CASE EVENT DATE: 20140205
